FAERS Safety Report 9441142 (Version 2)
Quarter: 2013Q3

REPORT INFORMATION
  Report Type: Spontaneous
  Country: BR (occurrence: BR)
  Receive Date: 20130805
  Receipt Date: 20130915
  Transmission Date: 20140515
  Serious: Yes (Other)
  Sender: FDA-Public Use
  Company Number: BR-BIOMARINAP-BR-2013-101199

PATIENT
  Sex: Male
  Weight: 54 kg

DRUGS (1)
  1. NAGLAZYME [Suspect]
     Indication: MUCOPOLYSACCHARIDOSIS VI
     Dosage: 50 MG, QW
     Route: 041
     Dates: start: 20120730

REACTIONS (3)
  - Cervical cord compression [Unknown]
  - Road traffic accident [Recovered/Resolved]
  - Quadriplegia [Recovered/Resolved]
